FAERS Safety Report 9434272 (Version 1)
Quarter: 2013Q3

REPORT INFORMATION
  Report Type: Report from Study
  Country: BR (occurrence: BR)
  Receive Date: 20130801
  Receipt Date: 20130801
  Transmission Date: 20140515
  Serious: Yes (Other)
  Sender: FDA-Public Use
  Company Number: PHHY2013BR081801

PATIENT
  Sex: Female
  Weight: 50 kg

DRUGS (8)
  1. EXJADE [Suspect]
     Indication: IRON OVERLOAD
     Dosage: 4 DF (500 MG)
  2. EXJADE [Suspect]
     Dosage: 5 DF (500 MG), A DAY
  3. EXJADE [Suspect]
     Dosage: 4 DF (500 MG)
  4. TENOFOVIR DISOPROXIL FUMARATE [Concomitant]
     Dosage: UNK UKN, UNK
     Dates: start: 2001
  5. EFAVIRENZ [Concomitant]
     Dosage: UNK UKN, UNK
     Dates: start: 2001
  6. LAMIVUDINE [Concomitant]
     Dosage: UNK UKN, UNK
     Dates: start: 2001
  7. FOLIC ACID [Concomitant]
     Dosage: UNK UKN, UNK
  8. MAREVAN [Concomitant]
     Dosage: UNK UKN, UNK

REACTIONS (4)
  - Visual acuity reduced [Not Recovered/Not Resolved]
  - Serum ferritin increased [Recovered/Resolved]
  - Skin discolouration [Recovering/Resolving]
  - Abdominal pain [Recovering/Resolving]
